FAERS Safety Report 6993157-X (Version None)
Quarter: 2010Q3

REPORT INFORMATION
  Report Type: 
  Country: None (occurrence: None)
  Receive Date: 20100917
  Receipt Date: 20070613
  Transmission Date: 20110219
  Serious: Yes (Hospitalization)
  Sender: FDA-Public Use
  Company Number: US-ASTRAZENECA-2006UW11517

PATIENT
  Age: 43 Year
  Sex: Male
  Weight: 89.8 kg

DRUGS (15)
  1. SEROQUEL [Suspect]
     Indication: DEPRESSION
     Route: 048
     Dates: start: 20020101
  2. SEROQUEL [Suspect]
     Indication: BIPOLAR DISORDER
     Route: 048
     Dates: start: 20020101
  3. SEROQUEL [Suspect]
     Dosage: STRENGTH: 100 MG, 300 MG, 600 MG. DOSE: 100 MG TO 1200 MG
     Route: 048
     Dates: start: 20030101
  4. SEROQUEL [Suspect]
     Dosage: STRENGTH: 100 MG, 300 MG, 600 MG. DOSE: 100 MG TO 1200 MG
     Route: 048
     Dates: start: 20030101
  5. RISPERDAL [Concomitant]
     Dates: start: 20010101
  6. KLONOPIN [Concomitant]
     Dosage: STRENGTH: 0.5 MG, 1.5 MG, 3 MG. DOSE: 0.5 MG TO 6 MG DAILY
     Route: 048
     Dates: start: 20030101
  7. GEODON [Concomitant]
     Dosage: STRENGTH: 60 MG, 80 MG DOSE: 120 MG TO 160 MG DAILY
     Dates: start: 20030101
  8. EFFEXOR [Concomitant]
     Dosage: STRENGTH: 150 MG, 450 MG. DOSE: 150 MG TO 450 MG DAILY
     Route: 048
     Dates: start: 20030101
  9. TENORMIN [Concomitant]
     Route: 048
     Dates: start: 20030101
  10. REMERON [Concomitant]
     Route: 048
     Dates: start: 20050706
  11. WELLBUTRIN [Concomitant]
     Route: 048
     Dates: start: 20050706
  12. TRAZODONE HCL [Concomitant]
     Route: 048
     Dates: start: 20030101
  13. HYDROXYZINE [Concomitant]
     Route: 048
     Dates: start: 20031010
  14. BENZTROPINE MESYLATE [Concomitant]
     Route: 048
     Dates: start: 20060318
  15. PRILOSEC [Concomitant]
     Route: 048
     Dates: start: 20060318

REACTIONS (4)
  - DIABETES MELLITUS [None]
  - DIABETIC COMA [None]
  - GLUCOSE TOLERANCE IMPAIRED [None]
  - TYPE 2 DIABETES MELLITUS [None]
